FAERS Safety Report 23422555 (Version 1)
Quarter: 2024Q1

REPORT INFORMATION
  Report Type: Spontaneous
  Country: US (occurrence: US)
  Receive Date: 20240119
  Receipt Date: 20240119
  Transmission Date: 20240409
  Serious: No
  Sender: FDA-Public Use
  Company Number: US-BRISTOL-MYERS SQUIBB COMPANY-2024-010320

PATIENT
  Age: 71 Year
  Sex: Female
  Weight: 45.359 kg

DRUGS (1)
  1. ELIQUIS [Suspect]
     Active Substance: APIXABAN
     Indication: Thrombosis
     Route: 048
     Dates: start: 20240111

REACTIONS (2)
  - Incorrect dose administered [Unknown]
  - Pain [Unknown]

NARRATIVE: CASE EVENT DATE: 20240111
